FAERS Safety Report 4896946-0 (Version None)
Quarter: 2006Q1

REPORT INFORMATION
  Report Type: 
  Country: None (occurrence: None)
  Receive Date: 20060127
  Receipt Date: 20060116
  Transmission Date: 20060701
  Serious: Yes (Hospitalization)
  Sender: FDA-Public Use
  Company Number: FR200601002478

PATIENT
  Age: 49 Year
  Sex: Female
  Weight: 65 kg

DRUGS (9)
  1. PROZAC [Suspect]
     Indication: DEPRESSION
     Dosage: ORAL
     Route: 048
  2. ORTHOSIPHON ARISTATUS (ORTHOSIPHON ARISTATUS) [Concomitant]
  3. EPHEDRINE SUL CAP [Concomitant]
  4. METFORMIN HCL [Concomitant]
  5. PRAVASTATIN [Concomitant]
  6. GLUCOMANNAN (GLUCOMANNAN) [Concomitant]
  7. VALIUM /NET/ (DIAZEPAM) [Concomitant]
  8. MEPRONIZINE (ACEPROMETAZINE, MEPROBAMATE) [Concomitant]
  9. DIHYDROERGOTAMINE MESYLATE [Concomitant]

REACTIONS (2)
  - DIARRHOEA [None]
  - MELANOSIS COLI [None]
